FAERS Safety Report 16473295 (Version 2)
Quarter: 2020Q2

REPORT INFORMATION
  Report Type: Spontaneous
  Country: GB (occurrence: GB)
  Receive Date: 20190625
  Receipt Date: 20200422
  Transmission Date: 20200713
  Serious: Yes (Hospitalization, Congenital Anomaly, Other)
  Sender: FDA-Public Use
  Company Number: GB-AUROBINDO PHARMA LTD-AUR-APL-2012-04711

PATIENT
  Age: 34 Year
  Sex: Female

DRUGS (12)
  1. KALETRA [Suspect]
     Active Substance: LOPINAVIR\RITONAVIR
     Indication: HIV INFECTION
  2. RALTEGRAVIR. [Concomitant]
     Active Substance: RALTEGRAVIR
     Indication: HIV INFECTION
     Dosage: 1 DOSAGE FORM, ONCE A DAY
     Route: 048
     Dates: start: 20100610
  3. ZIDOVUDINE. [Suspect]
     Active Substance: ZIDOVUDINE
     Indication: ANTIVIRAL TREATMENT
     Dosage: 800 MILLIGRAM, ONCE A DAY
     Route: 048
     Dates: start: 20100610
  4. NEVIRAPINE. [Suspect]
     Active Substance: NEVIRAPINE
     Indication: ANTIRETROVIRAL THERAPY
     Dosage: UNK, PATIENT TAKING MEDICINE AT CONCEPTION
     Route: 048
     Dates: start: 20090101, end: 20100610
  5. ISENTRESS [Suspect]
     Active Substance: RALTEGRAVIR POTASSIUM
     Indication: HIV INFECTION
     Dosage: 800 MILLIGRAM, DAILY
     Route: 048
     Dates: start: 20100610
  6. ISENTRESS [Suspect]
     Active Substance: RALTEGRAVIR POTASSIUM
     Dosage: 3200 MILLIGRAM, ONCE A DAY
     Route: 048
     Dates: start: 20100610
  7. LAMIVUDINE 300MG [Suspect]
     Active Substance: LAMIVUDINE
     Indication: ANTIRETROVIRAL THERAPY
     Dosage: UNK
     Route: 048
     Dates: start: 20100610
  8. KALETRA [Suspect]
     Active Substance: LOPINAVIR\RITONAVIR
     Indication: ANTIRETROVIRAL THERAPY
     Dosage: UNK, PATIENT WAS NOT TAKING MEDICINE AT CONCEPTION
     Route: 048
     Dates: start: 20100610
  9. ZIDOVUDINE. [Suspect]
     Active Substance: ZIDOVUDINE
     Dosage: 600 MILLIGRAM, ONCE A DAY
     Route: 048
     Dates: start: 20090110, end: 20100610
  10. LAMIVUDINE 300MG [Suspect]
     Active Substance: LAMIVUDINE
     Indication: HIV INFECTION
     Dosage: 300 MILLIGRAM, ONCE A DAY
     Route: 048
     Dates: start: 20090101, end: 20100610
  11. ZIDOVUDINE CAPSULES, HARD 100MG [Suspect]
     Active Substance: ZIDOVUDINE
     Indication: ANTIRETROVIRAL THERAPY
     Dosage: 600 MILLIGRAM, ONCE A DAY
     Route: 048
     Dates: start: 20090101, end: 20100610
  12. VIREAD [Suspect]
     Active Substance: TENOFOVIR DISOPROXIL FUMARATE
     Indication: HIV INFECTION
     Dosage: 300 MILLIGRAM, ONCE A DAY
     Route: 048
     Dates: start: 20100610

REACTIONS (5)
  - Aspartate aminotransferase increased [Unknown]
  - Caesarean section [Unknown]
  - Exposure during pregnancy [Recovered/Resolved]
  - Hepatocellular injury [Unknown]
  - Alanine aminotransferase increased [Unknown]

NARRATIVE: CASE EVENT DATE: 20100629
